FAERS Safety Report 17519374 (Version 1)
Quarter: 2020Q1

REPORT INFORMATION
  Report Type: Spontaneous
  Country: US (occurrence: US)
  Receive Date: 20200310
  Receipt Date: 20200310
  Transmission Date: 20200409
  Serious: No
  Sender: FDA-Public Use
  Company Number: US-ALLERGAN-1930172US

PATIENT
  Age: 70 Year
  Sex: Female

DRUGS (14)
  1. ESTRACE [Suspect]
     Active Substance: ESTRADIOL
     Indication: HORMONE THERAPY
     Dosage: 1 G, BI-WEEKLY
     Route: 067
     Dates: start: 20190308
  2. CINNAMON. [Concomitant]
     Active Substance: CINNAMON
     Dosage: UNK
  3. TOE NAIL FUNGUS MEDICATION [Concomitant]
     Indication: ONYCHOMYCOSIS
     Dosage: UNK
     Dates: start: 201812
  4. CALCIUM [Concomitant]
     Active Substance: CALCIUM
     Dosage: 1200 MG, QD
  5. PROBIOTICS [Concomitant]
     Active Substance: PROBIOTICS NOS
  6. VITAMIN C [Concomitant]
     Active Substance: ASCORBIC ACID
     Dosage: 1000 IU, QD
  7. VITAMIN B12 [Concomitant]
     Active Substance: CYANOCOBALAMIN
     Dosage: 1000 ?G, QD
  8. VITAMIN D3 [Concomitant]
     Active Substance: CHOLECALCIFEROL
     Dosage: 2000 IU, QD
  9. METFORMIN [Concomitant]
     Active Substance: METFORMIN HYDROCHLORIDE
     Indication: GLUCOSE TOLERANCE IMPAIRED
     Dosage: 500 MG, QD
  10. OXYBUTIN [Concomitant]
     Active Substance: OXYBUTYNIN
     Dosage: 5 MG, QD
  11. OMEPRAZOLE. [Concomitant]
     Active Substance: OMEPRAZOLE
     Dosage: 20 MG, QD
  12. NATURE BEST PROBIOTIC [Concomitant]
     Dosage: 10 MG, QD
  13. MELOXICAM. [Concomitant]
     Active Substance: MELOXICAM
     Dosage: 15 MG, QD
  14. 50 + WOMENS MULTIVITAMIN [Concomitant]
     Dosage: UNK, QD

REACTIONS (6)
  - Skin haemorrhage [Not Recovered/Not Resolved]
  - Product administration interrupted [Unknown]
  - Rash pruritic [Not Recovered/Not Resolved]
  - Contusion [Not Recovered/Not Resolved]
  - Eczema [Not Recovered/Not Resolved]
  - Rash [Not Recovered/Not Resolved]

NARRATIVE: CASE EVENT DATE: 201905
